FAERS Safety Report 24546512 (Version 2)
Quarter: 2024Q4

REPORT INFORMATION
  Report Type: Spontaneous
  Country: ES (occurrence: ES)
  Receive Date: 20241024
  Receipt Date: 20241108
  Transmission Date: 20250115
  Serious: Yes (Other)
  Sender: TEVA
  Company Number: ES-TEVA-VS-3254626

PATIENT
  Age: 31 Year
  Sex: Male

DRUGS (5)
  1. LAMIVUDINE [Suspect]
     Active Substance: LAMIVUDINE
     Indication: Acute HIV infection
     Route: 065
     Dates: end: 202211
  2. OMEPRAZOLE [Concomitant]
     Active Substance: OMEPRAZOLE
     Indication: Gastrooesophageal reflux disease
     Route: 065
  3. MIRTAZAPINE [Interacting]
     Active Substance: MIRTAZAPINE
     Indication: Depressive symptom
     Route: 065
  4. VORTIOXETINE [Interacting]
     Active Substance: VORTIOXETINE
     Indication: Depressive symptom
     Route: 065
     Dates: start: 202202
  5. COBICISTAT\DARUNAVIR ETHANOLATE [Suspect]
     Active Substance: COBICISTAT\DARUNAVIR ETHANOLATE
     Indication: Acute HIV infection
     Route: 065
     Dates: end: 202211

REACTIONS (4)
  - Drug interaction [Unknown]
  - Diarrhoea [Unknown]
  - Palpitations [Unknown]
  - Nausea [Unknown]
